FAERS Safety Report 4294663-1 (Version None)
Quarter: 2004Q1

REPORT INFORMATION
  Report Type: 
  Country: None (occurrence: None)
  Receive Date: 20040213
  Receipt Date: 20031121
  Transmission Date: 20041129
  Serious: Yes (Hospitalization)
  Sender: FDA-Public Use
  Company Number: FR-GLAXOSMITHKLINE-B0315706A

PATIENT
  Age: 59 Year
  Sex: Female
  Weight: 70 kg

DRUGS (3)
  1. MALARONE [Suspect]
     Indication: MALARIA PROPHYLAXIS
     Dosage: 250MG PER DAY
     Route: 048
     Dates: start: 20031112, end: 20031117
  2. PROZAC [Concomitant]
     Indication: DEPRESSION
     Dosage: 15MG PER DAY
     Route: 048
  3. DONORMYL [Concomitant]
     Indication: INSOMNIA

REACTIONS (8)
  - ANOREXIA [None]
  - CONFUSIONAL STATE [None]
  - LOGORRHOEA [None]
  - MANIA [None]
  - MENTAL DISORDER [None]
  - PSYCHOMOTOR AGITATION [None]
  - THINKING ABNORMAL [None]
  - URINARY INCONTINENCE [None]
